FAERS Safety Report 9678916 (Version 2)
Quarter: 2013Q4

REPORT INFORMATION
  Report Type: Spontaneous
  Country: JP (occurrence: JP)
  Receive Date: 20131108
  Receipt Date: 20131127
  Transmission Date: 20140711
  Serious: Yes (Hospitalization, Disabling, Other)
  Sender: FDA-Public Use
  Company Number: JP-PFIZER INC-2013317711

PATIENT
  Age: 89 Year
  Sex: Female
  Weight: 56 kg

DRUGS (9)
  1. TENORMIN [Suspect]
     Indication: HYPERTENSION
     Dosage: 25 MG, 2X/DAY
     Route: 048
     Dates: end: 20130920
  2. PERSANTIN-L [Concomitant]
     Dosage: 150 MG, 2X/DAY
     Route: 048
  3. BLOPRESS [Concomitant]
     Indication: RENAL FAILURE CHRONIC
     Dosage: 8 MG, 1X/DAY
     Route: 048
     Dates: end: 20130920
  4. LASIX [Concomitant]
     Indication: RENAL FAILURE CHRONIC
     Dosage: 40 MG, 1X/DAY
     Route: 048
     Dates: end: 20130920
  5. FEBURIC [Concomitant]
     Indication: HYPERURICAEMIA
     Dosage: 20 MG, 1X/DAY
     Route: 048
     Dates: end: 20130919
  6. FEBURIC [Concomitant]
     Dosage: 10 MG, 1X/DAY
     Route: 048
     Dates: start: 20130920
  7. ADALAT CR [Concomitant]
     Indication: HYPERTENSION
     Dosage: 40 MG, 1X/DAY
     Route: 048
     Dates: end: 20130920
  8. CALTAN [Concomitant]
     Indication: HYPERPARATHYROIDISM
     Dosage: 1000 MG, 3X/DAY
     Route: 048
  9. ARTIST [Concomitant]
     Indication: HYPOTHYROIDISM
     Dosage: 10 MG, 1X/DAY
     Route: 048
     Dates: start: 20130920

REACTIONS (5)
  - Electrocardiogram QT prolonged [Recovering/Resolving]
  - Drug level increased [Unknown]
  - Atrioventricular block first degree [Recovering/Resolving]
  - Bradycardia [Recovering/Resolving]
  - Hypotension [Recovering/Resolving]
